FAERS Safety Report 9752249 (Version 1)
Quarter: 2013Q4

REPORT INFORMATION
  Report Type: Spontaneous
  Country: US (occurrence: None)
  Receive Date: 20131212
  Receipt Date: 20131212
  Transmission Date: 20140711
  Serious: Yes (Other)
  Sender: FDA-Public Use
  Company Number: None

PATIENT
  Age: 48 Year
  Sex: Female
  Weight: 128.37 kg

DRUGS (1)
  1. VESICARE 10 MG [Suspect]
     Indication: BLADDER DISORDER
     Dosage: 10 MG, 1 PILL, DAILY, BY MOUTH
     Dates: start: 20131114, end: 20131126

REACTIONS (1)
  - Eye irritation [None]
